FAERS Safety Report 16249563 (Version 1)
Quarter: 2019Q2

REPORT INFORMATION
  Report Type: Report from Study
  Country: DE (occurrence: DE)
  Receive Date: 20190429
  Receipt Date: 20190429
  Transmission Date: 20190711
  Serious: Yes (Hospitalization)
  Sender: FDA-Public Use
  Company Number: DE-MYLANLABS-2019M1039639

PATIENT
  Age: 49 Year
  Sex: Male
  Weight: 64 kg

DRUGS (10)
  1. RIBAVIRIN. [Suspect]
     Active Substance: RIBAVIRIN
     Indication: CHRONIC HEPATITIS C
     Dosage: 1200 MG, QD
     Route: 048
     Dates: start: 20140213, end: 20140723
  2. DEKRISTOL NEU [Concomitant]
     Dosage: UNK ONCE A WEEK
     Route: 065
     Dates: start: 20140207
  3. PEGASYS [Suspect]
     Active Substance: PEGINTERFERON ALFA-2A
     Indication: CHRONIC HEPATITIS C
     Dosage: 180 UNK, UNK
     Route: 058
     Dates: start: 20140213, end: 20140723
  4. EMTRICITABINE [Suspect]
     Active Substance: EMTRICITABINE
     Indication: HIV INFECTION
     Dosage: 200 MILLIGRAM
     Route: 065
  5. ATAZANAVIR. [Concomitant]
     Active Substance: ATAZANAVIR
     Indication: HIV INFECTION
     Dosage: 300 MILLIGRAM
     Route: 065
  6. BISOPROLOL RATIOPHARM [Concomitant]
     Active Substance: BISOPROLOL
     Dosage: UNK
     Dates: start: 20061101
  7. SYMBICORT [Concomitant]
     Active Substance: BUDESONIDE\FORMOTEROL FUMARATE DIHYDRATE
     Dosage: UNK
     Dates: start: 20181105
  8. RITONAVIR. [Concomitant]
     Active Substance: RITONAVIR
     Indication: HIV INFECTION
     Dosage: 100 MG, UNK
     Route: 065
  9. IBUFLAM                            /00109201/ [Concomitant]
     Active Substance: IBUPROFEN
     Dosage: UNK
     Dates: start: 20181109
  10. TENOFOVIR [Suspect]
     Active Substance: TENOFOVIR
     Indication: HIV INFECTION
     Dosage: 300 MILLIGRAM
     Route: 065

REACTIONS (1)
  - Nasal septum deviation [Recovered/Resolved]

NARRATIVE: CASE EVENT DATE: 20181102
